FAERS Safety Report 6840636-1 (Version None)
Quarter: 2010Q3

REPORT INFORMATION
  Report Type: 
  Country: None (occurrence: None)
  Receive Date: 20100714
  Receipt Date: 20100629
  Transmission Date: 20110219
  Serious: Yes (Other)
  Sender: FDA-Public Use
  Company Number: IE-JNJCH-2007325956

PATIENT
  Sex: Female

DRUGS (3)
  1. ROGAINE [Suspect]
     Indication: ALOPECIA
     Dosage: TEXT:UNKNOWN
     Route: 061
  2. DICLOFENAC SODIUM [Suspect]
     Indication: OSTEOARTHRITIS
     Dosage: TEXT:UNKNOWN
     Route: 065
  3. PROSCAR [Suspect]
     Indication: ALOPECIA
     Dosage: TEXT:1/2 TABLET DAILY
     Route: 048

REACTIONS (1)
  - DERMATITIS CONTACT [None]
